FAERS Safety Report 24557277 (Version 2)
Quarter: 2024Q4

REPORT INFORMATION
  Report Type: Report from Study
  Country: US (occurrence: US)
  Receive Date: 20241028
  Receipt Date: 20241111
  Transmission Date: 20250115
  Serious: Yes (Hospitalization)
  Sender: ABBVIE
  Company Number: US-ABBVIE-5927278

PATIENT
  Age: 61 Year
  Sex: Female
  Weight: 108.86 kg

DRUGS (4)
  1. SKYRIZI [Suspect]
     Active Substance: RISANKIZUMAB-RZAA
     Indication: Psoriasis
     Route: 058
     Dates: start: 2022, end: 202308
  2. SKYRIZI [Suspect]
     Active Substance: RISANKIZUMAB-RZAA
     Indication: Rheumatoid arthritis
  3. REMICADE [Concomitant]
     Active Substance: INFLIXIMAB
     Indication: Product used for unknown indication
     Dates: end: 20240825
  4. TYLENOL [Concomitant]
     Active Substance: ACETAMINOPHEN
     Indication: Product used for unknown indication

REACTIONS (13)
  - Colitis ulcerative [Recovered/Resolved]
  - Illness [Recovering/Resolving]
  - Pain [Not Recovered/Not Resolved]
  - Colitis ulcerative [Recovered/Resolved]
  - Diarrhoea [Recovering/Resolving]
  - Colitis ulcerative [Recovered/Resolved]
  - Constipation [Unknown]
  - Drug ineffective [Not Recovered/Not Resolved]
  - Colitis ulcerative [Unknown]
  - Gastrointestinal disorder [Recovering/Resolving]
  - Therapeutic response shortened [Not Recovered/Not Resolved]
  - Colitis ulcerative [Recovering/Resolving]
  - Rectal haemorrhage [Unknown]

NARRATIVE: CASE EVENT DATE: 20230101
